FAERS Safety Report 17665851 (Version 1)
Quarter: 2020Q2

REPORT INFORMATION
  Report Type: Spontaneous
  Country: GB (occurrence: GB)
  Receive Date: 20200414
  Receipt Date: 20200414
  Transmission Date: 20200713
  Serious: Yes (Other)
  Sender: FDA-Public Use
  Company Number: GB-ACCORD-178543

PATIENT
  Age: 70 Year
  Sex: Female
  Weight: 75.6 kg

DRUGS (4)
  1. ATORVASTATIN/ATORVASTATIN CALCIUM [Suspect]
     Active Substance: ATORVASTATIN CALCIUM
     Indication: HYPERLIPIDAEMIA
     Route: 048
     Dates: start: 20181017, end: 20191119
  2. BENDROFLUMETHIAZIDE [Concomitant]
     Active Substance: BENDROFLUMETHIAZIDE
     Dates: start: 201904
  3. ZOPICLONE [Concomitant]
     Active Substance: ZOPICLONE
     Dates: start: 2015
  4. FELODIPINE. [Concomitant]
     Active Substance: FELODIPINE
     Dates: start: 2007

REACTIONS (4)
  - Idiopathic urticaria [Recovered/Resolved with Sequelae]
  - Fatigue [Recovered/Resolved with Sequelae]
  - Myalgia [Recovered/Resolved with Sequelae]
  - Pruritus [Recovered/Resolved with Sequelae]
